FAERS Safety Report 5461837-3 (Version None)
Quarter: 2007Q3

REPORT INFORMATION
  Report Type: 
  Country: None (occurrence: None)
  Receive Date: 20070920
  Receipt Date: 20061229
  Transmission Date: 20080115
  Serious: No
  Sender: FDA-Public Use
  Company Number: A0632701A

PATIENT
  Age: 26 Year
  Sex: Female

DRUGS (1)
  1. ABREVA [Suspect]
     Dates: start: 20061226

REACTIONS (4)
  - APPLICATION SITE INFECTION [None]
  - HYPERSENSITIVITY [None]
  - LIP SWELLING [None]
  - PHARMACEUTICAL PRODUCT COMPLAINT [None]
